FAERS Safety Report 6331013-0 (Version None)
Quarter: 2009Q3

REPORT INFORMATION
  Report Type: 
  Country: None (occurrence: None)
  Receive Date: 20090827
  Receipt Date: 20090821
  Transmission Date: 20100115
  Serious: Yes (Hospitalization)
  Sender: FDA-Public Use
  Company Number: A0794665A

PATIENT
  Age: 87 Year
  Sex: Female

DRUGS (11)
  1. ADVAIR HFA [Suspect]
     Indication: CHRONIC OBSTRUCTIVE PULMONARY DISEASE
     Dosage: 1PUFF TWICE PER DAY
     Route: 055
     Dates: start: 20090302
  2. SYNTHROID [Concomitant]
  3. NORVASC [Concomitant]
  4. ALTACE [Concomitant]
  5. VITAMIN D [Concomitant]
  6. DIURETIC [Concomitant]
  7. TIMOPTIC [Concomitant]
  8. OXYGEN [Concomitant]
     Route: 055
  9. B COMPLEX ELX [Concomitant]
  10. FISH OIL [Concomitant]
  11. MULTI-VITAMIN [Concomitant]

REACTIONS (5)
  - ALOPECIA [None]
  - BRONCHITIS CHRONIC [None]
  - DYSPNOEA [None]
  - EMPHYSEMA [None]
  - NASOPHARYNGITIS [None]
